FAERS Safety Report 18700480 (Version 1)
Quarter: 2021Q1

REPORT INFORMATION
  Report Type: Spontaneous
  Country: ES (occurrence: ES)
  Receive Date: 20210105
  Receipt Date: 20210105
  Transmission Date: 20210419
  Serious: Yes (Hospitalization, Other)
  Sender: FDA-Public Use
  Company Number: ES-GLAXOSMITHKLINE-ES2020256811

PATIENT
  Age: 71 Year
  Sex: Female

DRUGS (3)
  1. ENANTYUM [Suspect]
     Active Substance: DEXKETOPROFEN TROMETAMOL
     Indication: PAIN
     Dosage: 25 MG, Q12H
     Route: 048
     Dates: start: 20200416, end: 20200420
  2. VOLTAREN [Suspect]
     Active Substance: DICLOFENAC SODIUM
     Indication: PAIN
     Dosage: 75 MG, Q12H
     Route: 048
     Dates: start: 20200414, end: 20200416
  3. DEXKETOPROFENO [Suspect]
     Active Substance: DEXKETOPROFEN
     Indication: PAIN
     Dosage: 50 MG, QD 2 DAYS
     Route: 030
     Dates: start: 20200414, end: 20200415

REACTIONS (1)
  - Acute kidney injury [Unknown]

NARRATIVE: CASE EVENT DATE: 20200420
